FAERS Safety Report 8624707-5 (Version None)
Quarter: 2012Q3

REPORT INFORMATION
  Report Type: 
  Country: None (occurrence: None)
  Receive Date: 20120827
  Receipt Date: 20120821
  Transmission Date: 20120928
  Serious: Yes (Life-Threatening, Other)
  Sender: FDA-Public Use
  Company Number: JP-GLAXOSMITHKLINE-B0813276B

PATIENT
  Sex: Female
  Weight: 45.8 kg

DRUGS (9)
  1. GRANISETRON [Concomitant]
     Indication: NAUSEA
     Dosage: 3MG PER DAY
     Route: 042
     Dates: start: 20120705, end: 20120706
  2. MAGLAX [Concomitant]
     Indication: CONSTIPATION
     Route: 048
     Dates: start: 20120611, end: 20120706
  3. CISPLATIN [Suspect]
     Indication: DIFFUSE LARGE B-CELL LYMPHOMA RECURRENT
     Dosage: 100MGM2 EVERY 3 WEEKS
     Route: 042
     Dates: start: 20120611
  4. DEXAMETHASONE [Suspect]
     Indication: DIFFUSE LARGE B-CELL LYMPHOMA RECURRENT
     Dosage: 40MG EVERY 3 WEEKS
     Route: 042
     Dates: start: 20120611
  5. CYTARABINE [Suspect]
     Indication: DIFFUSE LARGE B-CELL LYMPHOMA RECURRENT
     Dosage: 4GM2 EVERY 3 WEEKS
     Route: 042
     Dates: start: 20120612
  6. PRIMPERAN TAB [Concomitant]
     Indication: NAUSEA
     Route: 048
     Dates: start: 20120705, end: 20120706
  7. OFATUMUMAB [Suspect]
     Indication: DIFFUSE LARGE B-CELL LYMPHOMA RECURRENT
     Route: 042
     Dates: start: 20120608
  8. RABEPRAZOLE SODIUM [Concomitant]
     Indication: GASTRITIS PROPHYLAXIS
     Dosage: 10MG PER DAY
     Route: 048
     Dates: start: 20120608, end: 20120706
  9. ORGADRONE [Concomitant]
     Indication: CONJUNCTIVITIS
     Route: 047
     Dates: start: 20120703, end: 20120706

REACTIONS (1)
  - CEREBRAL HAEMORRHAGE [None]
